FAERS Safety Report 8900958 (Version 4)
Quarter: 2013Q1

REPORT INFORMATION
  Report Type: Spontaneous
  Country: FI (occurrence: FI)
  Receive Date: 20121109
  Receipt Date: 20130222
  Transmission Date: 20140127
  Serious: Yes (Hospitalization, Disabling, Other)
  Sender: FDA-Public Use
  Company Number: PHHY2012FI102933

PATIENT
  Sex: Female
  Weight: 46 kg

DRUGS (10)
  1. SANDIMMUN NEORAL / OL [Suspect]
     Indication: PROPHYLAXIS
     Dosage: 125 MG (50 MG IN THE MORNINGS AND 75 MG IN THE EVENINGS)
     Route: 048
     Dates: start: 200311
  2. DILTIAZEM [Suspect]
     Indication: CARDIAC DISORDER
     Dosage: 120 MG (ONE TABLET TWICE A DAY)
     Dates: end: 20121112
  3. CELLCEPT [Concomitant]
     Indication: PROPHYLAXIS
     Dosage: 500 MG, BID
  4. PREDNISOLON [Concomitant]
     Indication: TRANSPLANT
     Dosage: 5 MG (HALF OF THE TABLET)
  5. EMCONCOR [Concomitant]
     Indication: CARDIAC DISORDER
     Dosage: 5 MG (HALF OF A TABLET TWICE A DAY)
  6. PRIMASPAN [Concomitant]
     Indication: CARDIAC DISORDER
  7. ATORVASTATIN [Concomitant]
     Indication: HYPERCHOLESTEROLAEMIA
     Dosage: 100 MG, IN THE EVENING
  8. EZETROL [Concomitant]
     Indication: HYPERCHOLESTEROLAEMIA
     Dosage: 10 MG (HALF OF A TABLET EVERY SECOND DAY IN THE MORNINGS)
     Dates: start: 201205
  9. AERIUS [Concomitant]
     Indication: HYPERSENSITIVITY
     Dosage: 5 MG, QD
  10. CALCICHEW D3 [Concomitant]
     Dosage: 2 DF, QD

REACTIONS (9)
  - Nerve injury [Not Recovered/Not Resolved]
  - Tuberculosis [Recovering/Resolving]
  - Pyrexia [Not Recovered/Not Resolved]
  - Pain in extremity [Not Recovered/Not Resolved]
  - Pharyngitis [Not Recovered/Not Resolved]
  - Mobility decreased [Not Recovered/Not Resolved]
  - Gait disturbance [Not Recovered/Not Resolved]
  - Sleep disorder [Not Recovered/Not Resolved]
  - Nail hypertrophy [Not Recovered/Not Resolved]
